FAERS Safety Report 19867180 (Version 1)
Quarter: 2021Q3

REPORT INFORMATION
  Report Type: Report from Study
  Country: CN (occurrence: CN)
  Receive Date: 20210921
  Receipt Date: 20210921
  Transmission Date: 20211014
  Serious: Yes (Other)
  Sender: FDA-Public Use
  Company Number: NVSC2020CN202199

PATIENT
  Age: 41 Year
  Sex: Male

DRUGS (12)
  1. METOPROLOL SUCCINATE. [Concomitant]
     Active Substance: METOPROLOL SUCCINATE
     Indication: PRE-EXISTING DISEASE
     Dosage: 95 MG, UNKNOWN
     Route: 048
     Dates: start: 20200415, end: 202009
  2. MECOBALAMIN [Concomitant]
     Active Substance: METHYLCOBALAMIN
     Indication: PRE-EXISTING DISEASE
     Dosage: 500 UG, UNKNOWN
     Route: 048
     Dates: start: 20200418, end: 202009
  3. ENTRESTO [Suspect]
     Active Substance: SACUBITRIL\VALSARTAN
     Dosage: 25 MG
     Route: 048
     Dates: start: 20200410, end: 20200413
  4. ROSUVASTATIN CALCIUM. [Concomitant]
     Active Substance: ROSUVASTATIN CALCIUM
     Indication: CARDIAC FAILURE CHRONIC
     Dosage: 10 MG
     Route: 048
     Dates: start: 20200409, end: 202009
  5. TICAGRELOR. [Concomitant]
     Active Substance: TICAGRELOR
     Indication: CARDIAC FAILURE CHRONIC
     Dosage: 90 MG
     Route: 048
     Dates: start: 20200409, end: 202009
  6. SODIUM RABEPRAZOLE [Concomitant]
     Active Substance: RABEPRAZOLE SODIUM
     Indication: PRE-EXISTING DISEASE
     Dosage: 20 MG, UNKNOWN
     Route: 048
     Dates: start: 20200409, end: 202009
  7. ENTRESTO [Suspect]
     Active Substance: SACUBITRIL\VALSARTAN
     Dosage: 50 MG
     Route: 048
     Dates: start: 20200413, end: 2020
  8. ASPIRIN. [Concomitant]
     Active Substance: ASPIRIN
     Indication: CARDIAC FAILURE CHRONIC
     Dosage: 100 MG
     Route: 048
     Dates: start: 20200410, end: 202009
  9. ENTRESTO [Suspect]
     Active Substance: SACUBITRIL\VALSARTAN
     Indication: CARDIAC FAILURE CHRONIC
     Dosage: 50 MG
     Route: 048
     Dates: start: 20200409, end: 20200410
  10. TRIMETAZIDINE DIHYDROCHLORIDE [Concomitant]
     Active Substance: TRIMETAZIDINE DIHYDROCHLORIDE
     Indication: CARDIAC FAILURE CHRONIC
     Dosage: 35 MG
     Route: 048
     Dates: start: 20200409, end: 202009
  11. CEFOPERAZONE SODIUM AND SULBACTAM SODIUM [Concomitant]
     Active Substance: CEFOPERAZONE SODIUM\SULBACTAM SODIUM
     Indication: CARDIAC FAILURE CHRONIC
     Dosage: 3 G
     Route: 042
     Dates: start: 20200409, end: 202009
  12. DIGOXIN. [Concomitant]
     Active Substance: DIGOXIN
     Indication: CARDIAC FAILURE CHRONIC
     Dosage: 0.125 MG
     Route: 048
     Dates: start: 20200410, end: 202009

REACTIONS (2)
  - Wrong technique in product usage process [Unknown]
  - Subarachnoid haemorrhage [Not Recovered/Not Resolved]

NARRATIVE: CASE EVENT DATE: 20200409
